FAERS Safety Report 9624318 (Version 2)
Quarter: 2013Q4

REPORT INFORMATION
  Report Type: Report from Study
  Country: DE (occurrence: DE)
  Receive Date: 20131015
  Receipt Date: 20131015
  Transmission Date: 20140711
  Serious: Yes (Other)
  Sender: FDA-Public Use
  Company Number: DE-TEVA-420446GER

PATIENT
  Sex: Female

DRUGS (3)
  1. COPAXONE [Suspect]
     Indication: MULTIPLE SCLEROSIS
     Route: 058
     Dates: start: 201008
  2. LAMOTRIGINE [Concomitant]
     Indication: AFFECTIVE DISORDER
     Route: 048
     Dates: start: 201009
  3. CITALOPRAM [Concomitant]
     Indication: AFFECTIVE DISORDER
     Route: 048
     Dates: start: 201003

REACTIONS (1)
  - Cognitive disorder [Not Recovered/Not Resolved]
